FAERS Safety Report 8619891 (Version 4)
Quarter: 2014Q1

REPORT INFORMATION
  Report Type: Spontaneous
  Country: US (occurrence: US)
  Receive Date: 20120618
  Receipt Date: 20140212
  Transmission Date: 20141002
  Serious: Yes (Other)
  Sender: FDA-Public Use
  Company Number: US-PFIZER INC-2012142612

PATIENT
  Age: 77 Year
  Sex: Female

DRUGS (14)
  1. LYRICA [Suspect]
     Dosage: 50 MG, 3X/DAY
     Dates: start: 20100803
  2. ALEVE [Concomitant]
     Dosage: 220 MG, UNK
  3. LYSINE [Concomitant]
     Dosage: 1000 MG, 1X/DAY
  4. LEVOTHYROXINE [Concomitant]
     Dosage: 112 UG, 1X/DAY
  5. VITAMIN D3 [Concomitant]
     Dosage: 1 DF, 1X/DAY
  6. TRAZODONE [Concomitant]
     Dosage: 100 MG, 1X/DAY
  7. LASIX [Concomitant]
     Dosage: 40 MG, 1X/DAY
  8. CALCIUM WITH VITAMIN D [Concomitant]
     Dosage: 1 DF, 1X/DAY
  9. MAGNESIUM [Concomitant]
     Dosage: 2 DF, 1X/DAY
  10. PREVACID [Concomitant]
     Dosage: 30 MG, 1X/DAY
  11. VITAMIN B12 [Concomitant]
     Dosage: 1 DF, 1X/DAY
  12. KLONOPIN [Concomitant]
     Dosage: 0.5 MG, 3X/DAY
     Dates: start: 20100810
  13. POTASSIUM CHLORIDE [Concomitant]
     Dosage: 20 MEQ, 1X/DAY
     Dates: start: 20100319
  14. REMERON [Concomitant]
     Dosage: 30 MG, 1X/DAY
     Dates: start: 20090807

REACTIONS (1)
  - Cataract [Unknown]
